FAERS Safety Report 4533561-2 (Version None)
Quarter: 2004Q4

REPORT INFORMATION
  Report Type: 
  Country: None (occurrence: None)
  Receive Date: 20041206
  Receipt Date: 20041013
  Transmission Date: 20050328
  Serious: No
  Sender: FDA-Public Use
  Company Number: USA041080013

PATIENT
  Age: 76 Year
  Sex: Female
  Weight: 68 kg

DRUGS (6)
  1. CYMBALTA [Suspect]
     Indication: DEPRESSION
     Dosage: 30 MG/1 DAY
     Dates: start: 20041001
  2. FOSAMAX [Concomitant]
  3. DARVOCET-N 100 [Concomitant]
  4. MILK OF MAGNESIA TAB [Concomitant]
  5. MIRALAX [Concomitant]
  6. TYLENOL (CAPLET) [Concomitant]

REACTIONS (8)
  - CHEST PAIN [None]
  - CONSTIPATION [None]
  - DYSPNOEA [None]
  - FEELING ABNORMAL [None]
  - HEART RATE INCREASED [None]
  - INSOMNIA [None]
  - MIGRAINE [None]
  - STOMACH DISCOMFORT [None]
